FAERS Safety Report 5229036-8 (Version None)
Quarter: 2007Q1

REPORT INFORMATION
  Report Type: 
  Country: None (occurrence: None)
  Receive Date: 20061201
  Receipt Date: 20060918
  Transmission Date: 20070707
  Serious: No
  Sender: FDA-Public Use
  Company Number: US200609004465

PATIENT
  Age: 33 Year
  Sex: Male

DRUGS (3)
  1. CYMBALTA [Suspect]
     Indication: NERVE INJURY
     Dosage: 30 MG, ORAL
     Route: 048
     Dates: start: 20060911, end: 20060915
  2. NEURONTIN [Concomitant]
  3. AMBIEN [Concomitant]

REACTIONS (3)
  - CRYING [None]
  - DIARRHOEA [None]
  - EJACULATION DELAYED [None]
